FAERS Safety Report 20232594 (Version 6)
Quarter: 2022Q4

REPORT INFORMATION
  Report Type: Spontaneous
  Country: US (occurrence: US)
  Receive Date: 20211227
  Receipt Date: 20221229
  Transmission Date: 20230113
  Serious: Yes (Hospitalization, Other)
  Sender: FDA-Public Use
  Company Number: US-PFIZER INC-202101798210

PATIENT
  Age: 59 Year
  Sex: Female
  Weight: 112.4 kg

DRUGS (1)
  1. XELJANZ XR [Suspect]
     Active Substance: TOFACITINIB CITRATE
     Indication: Rheumatoid arthritis
     Dosage: 11 MG, DAILY
     Route: 048

REACTIONS (11)
  - Blindness [Not Recovered/Not Resolved]
  - Guillain-Barre syndrome [Unknown]
  - Cellulitis [Unknown]
  - Condition aggravated [Not Recovered/Not Resolved]
  - Eye pain [Unknown]
  - Eye injury [Unknown]
  - Dizziness [Unknown]
  - Chronic inflammatory demyelinating polyradiculoneuropathy [Unknown]
  - Interferon gamma release assay positive [Unknown]
  - Arthritis [Unknown]
  - Pulmonary mass [Unknown]

NARRATIVE: CASE EVENT DATE: 20180627
